FAERS Safety Report 4589765-6 (Version None)
Quarter: 2005Q1

REPORT INFORMATION
  Report Type: 
  Country: None (occurrence: None)
  Receive Date: 20050223
  Receipt Date: 20050216
  Transmission Date: 20050727
  Serious: Yes (Other)
  Sender: FDA-Public Use
  Company Number: US-BRISTOL-MYERS SQUIBB COMPANY-12872461

PATIENT

DRUGS (1)
  1. ERBITUX [Suspect]

REACTIONS (1)
  - ARTHRALGIA [None]
